FAERS Safety Report 20701358 (Version 2)
Quarter: 2022Q2

REPORT INFORMATION
  Report Type: Report from Study
  Country: CA (occurrence: CA)
  Receive Date: 20220412
  Receipt Date: 20220429
  Transmission Date: 20220721
  Serious: No
  Sender: FDA-Public Use
  Company Number: CA-BAUSCH-BL-2021-033984

PATIENT
  Age: 25 Year
  Sex: Female

DRUGS (2)
  1. SILIQ [Suspect]
     Active Substance: BRODALUMAB
     Indication: Hidradenitis
     Dosage: 210MG/ 1.5 ML WEEK 0,1,2
     Route: 058
     Dates: start: 20210921, end: 202110
  2. SILIQ [Suspect]
     Active Substance: BRODALUMAB
     Indication: Off label use
     Dosage: 210MG/ 1.5 ML WEEK 0,1,2
     Route: 058
     Dates: end: 202201

REACTIONS (6)
  - Abdominal discomfort [Not Recovered/Not Resolved]
  - Arthralgia [Not Recovered/Not Resolved]
  - Nausea [Not Recovered/Not Resolved]
  - Drug effective for unapproved indication [Unknown]
  - Off label use [Unknown]
  - Intentional product use issue [Unknown]

NARRATIVE: CASE EVENT DATE: 20210901
